FAERS Safety Report 6369662-6 (Version None)
Quarter: 2009Q3

REPORT INFORMATION
  Report Type: 
  Country: None (occurrence: None)
  Receive Date: 20090923
  Receipt Date: 20090915
  Transmission Date: 20100115
  Serious: Yes (Hospitalization, Other)
  Sender: FDA-Public Use
  Company Number: US-AMGEN-QUU362033

PATIENT
  Sex: Male
  Weight: 99.9 kg

DRUGS (20)
  1. ARANESP [Suspect]
     Indication: RENAL FAILURE CHRONIC
     Route: 042
     Dates: start: 20070402
  2. PROGRAF [Concomitant]
     Dates: start: 20080422
  3. FUROSEMIDE [Concomitant]
     Dates: start: 20080422
  4. HECTORAL [Concomitant]
     Dates: start: 20090610
  5. MYFORTIC [Concomitant]
     Dates: start: 20080422
  6. PREDNISONE TAB [Concomitant]
     Dates: start: 20080422
  7. LEVOTHROID [Concomitant]
  8. SIMVASTATIN [Concomitant]
  9. MAGNESIUM [Concomitant]
     Route: 048
  10. ADVAIR HFA [Concomitant]
     Route: 048
  11. NEBIVOLOL [Concomitant]
  12. TUMS [Concomitant]
     Route: 048
  13. PROTONIX [Concomitant]
  14. VITAMIN D [Concomitant]
  15. SODIUM BICARBONATE IN PLASTIC CONTAINER [Concomitant]
  16. MICARDIS [Concomitant]
  17. SPIRONOLACTONE [Concomitant]
  18. COMBIVENT [Concomitant]
     Route: 048
  19. METOPROLOL TARTRATE [Concomitant]
  20. OMEPRAZOLE [Concomitant]

REACTIONS (5)
  - BLOOD PARATHYROID HORMONE INCREASED [None]
  - DYSPNOEA EXERTIONAL [None]
  - FLUID OVERLOAD [None]
  - OEDEMA PERIPHERAL [None]
  - REFRACTORY ANAEMIA [None]
